FAERS Safety Report 8548694-3 (Version None)
Quarter: 2012Q3

REPORT INFORMATION
  Report Type: 
  Country: None (occurrence: None)
  Receive Date: 20120717
  Receipt Date: 20120706
  Transmission Date: 20120928
  Serious: Yes (Other)
  Sender: FDA-Public Use
  Company Number: TOR 2012-0012

PATIENT
  Sex: Female

DRUGS (1)
  1. FARESTON [Suspect]
     Indication: BREAST CANCER
     Dosage: 120 MG, ORAL
     Route: 048
     Dates: start: 20110101

REACTIONS (4)
  - HEPATIC FUNCTION ABNORMAL [None]
  - ALANINE AMINOTRANSFERASE INCREASED [None]
  - RESPIRATORY FAILURE [None]
  - ASPARTATE AMINOTRANSFERASE INCREASED [None]
